FAERS Safety Report 4877127-3 (Version None)
Quarter: 2005Q4

REPORT INFORMATION
  Report Type: 
  Country: None (occurrence: None)
  Receive Date: 20051206
  Receipt Date: 20050812
  Transmission Date: 20060501
  Serious: No
  Sender: FDA-Public Use
  Company Number: USA0508105058

PATIENT
  Sex: Female

DRUGS (2)
  1. CYMBALTA [Suspect]
     Dosage: 20 MG
  2. PROZAC [Suspect]
     Dates: end: 20000101

REACTIONS (5)
  - DRY MOUTH [None]
  - GLOSSODYNIA [None]
  - HYPERHIDROSIS [None]
  - ORAL DISCOMFORT [None]
  - VOMITING [None]
